FAERS Safety Report 5669220-2 (Version None)
Quarter: 2008Q1

REPORT INFORMATION
  Report Type: 
  Country: None (occurrence: None)
  Receive Date: 20080317
  Receipt Date: 20080303
  Transmission Date: 20080703
  Serious: Yes (Other)
  Sender: FDA-Public Use
  Company Number: PHMT2007CA02108

PATIENT
  Sex: Male
  Weight: 68.027 kg

DRUGS (4)
  1. GLEEVEC [Suspect]
     Indication: CHRONIC MYELOID LEUKAEMIA
     Dosage: 400 MG, 2 TABS QD
     Route: 048
     Dates: start: 20040131
  2. PANTOPRAZOLE SODIUM [Concomitant]
     Dosage: 40, QD
  3. SENOKOT  /UNK/ [Concomitant]
     Dosage: 8.6, 1 TAB QD
     Route: 048
  4. COLACE [Concomitant]
     Dosage: 100, 1-2 TABLETS, QHS
     Route: 048

REACTIONS (10)
  - BALANITIS [None]
  - DERMATITIS [None]
  - ERYTHEMA [None]
  - HYPERAESTHESIA [None]
  - SKIN ATROPHY [None]
  - SKIN FISSURES [None]
  - SKIN FRAGILITY [None]
  - SKIN HAEMORRHAGE [None]
  - SKIN IRRITATION [None]
  - SYNCOPE [None]
